FAERS Safety Report 7057956-0 (Version None)
Quarter: 2010Q4

REPORT INFORMATION
  Report Type: 
  Country: None (occurrence: None)
  Receive Date: 20101021
  Receipt Date: 20101021
  Transmission Date: 20110411
  Serious: Yes (Life-Threatening)
  Sender: FDA-Public Use
  Company Number: None

PATIENT
  Age: 59 Year
  Sex: Female
  Weight: 73.0291 kg

DRUGS (2)
  1. CYCLOPHOSPHAMIDE [Suspect]
     Indication: BREAST CANCER
     Dosage: IV DRIP
     Route: 041
     Dates: start: 19940608, end: 19940810
  2. DOXORUBICIN HCL [Suspect]
     Dosage: IV BOLUS
     Route: 040
     Dates: start: 19940608, end: 19940810

REACTIONS (1)
  - BREAST CANCER [None]
